FAERS Safety Report 8796891 (Version 1)
Quarter: 2012Q4

REPORT INFORMATION
  Report Type: Report from Study
  Country: US (occurrence: US)
  Receive Date: 20120920
  Receipt Date: 20120920
  Transmission Date: 20130627
  Serious: Yes (Hospitalization)
  Sender: FDA-Public Use
  Company Number: US-US-EMD SERONO, INC.-7161186

PATIENT
  Sex: Female
  Weight: 59 kg

DRUGS (3)
  1. REBIF [Suspect]
     Indication: MULTIPLE SCLEROSIS
     Route: 058
     Dates: start: 20070731
  2. PLAVIX [Concomitant]
     Indication: THROMBOSIS
     Dates: start: 200204
  3. ZOCOR [Concomitant]
     Indication: BLOOD CHOLESTEROL

REACTIONS (1)
  - Arterial occlusive disease [Recovered/Resolved]
